FAERS Safety Report 16288548 (Version 1)
Quarter: 2019Q2

REPORT INFORMATION
  Report Type: Spontaneous
  Country: US (occurrence: US)
  Receive Date: 20190509
  Receipt Date: 20190509
  Transmission Date: 20190711
  Serious: No
  Sender: FDA-Public Use
  Company Number: US-GLAXOSMITHKLINE-US2019081172

PATIENT
  Age: 48 Year
  Sex: Female

DRUGS (1)
  1. FLONASE [Suspect]
     Active Substance: FLUTICASONE PROPIONATE
     Indication: HYPERSENSITIVITY
     Dosage: 1 UNK, QD
     Route: 045

REACTIONS (4)
  - Epistaxis [Recovered/Resolved]
  - Headache [Recovered/Resolved]
  - Nasal dryness [Recovered/Resolved]
  - Burning sensation [Recovered/Resolved]
